FAERS Safety Report 4491735-3 (Version None)
Quarter: 2004Q4

REPORT INFORMATION
  Report Type: 
  Country: None (occurrence: None)
  Receive Date: 20041103
  Receipt Date: 20041025
  Transmission Date: 20050328
  Serious: Yes (Life-Threatening, Hospitalization)
  Sender: FDA-Public Use
  Company Number: US-MERCK-0410USA03685

PATIENT
  Age: 52 Year
  Sex: Male

DRUGS (7)
  1. VIOXX [Suspect]
     Indication: ARTHRITIS
     Route: 048
     Dates: start: 20000901, end: 20030926
  2. PLAVIX [Concomitant]
     Route: 065
  3. ZOCOR [Concomitant]
     Route: 065
  4. NEXIUM [Concomitant]
     Route: 065
  5. DIAZEPAM [Concomitant]
     Route: 065
  6. GLUCOTROL [Concomitant]
     Route: 065
  7. BIAXIN [Concomitant]
     Route: 065

REACTIONS (2)
  - CHEST PAIN [None]
  - CORONARY ARTERY DISEASE [None]
